FAERS Safety Report 9735840 (Version 1)
Quarter: 2013Q4

REPORT INFORMATION
  Report Type: Spontaneous
  Country: US (occurrence: US)
  Receive Date: 20131206
  Receipt Date: 20131206
  Transmission Date: 20140711
  Serious: Yes (Other)
  Sender: FDA-Public Use
  Company Number: US-GILEAD-2009-0023999

PATIENT
  Age: 79 Year
  Sex: Female
  Weight: 113.4 kg

DRUGS (15)
  1. LETAIRIS [Suspect]
     Indication: PULMONARY ARTERIAL HYPERTENSION
     Route: 048
     Dates: start: 20090810, end: 20090822
  2. WARFARIN [Concomitant]
  3. AMLODIPINE [Concomitant]
  4. BABY ASPIRIN [Concomitant]
  5. FUROSEMIDE [Concomitant]
  6. ROPINIROLE [Concomitant]
  7. LORAZEPAM [Concomitant]
  8. PROPOXY/APAP [Concomitant]
  9. ALLOPURINOL [Concomitant]
  10. ESTROPIPATE [Concomitant]
  11. CALCIUM 600 [Concomitant]
  12. GLUCOSAMINE [Concomitant]
  13. MULTI VIT [Concomitant]
  14. VIT E + C LOT BEAUTY [Concomitant]
  15. ALVESCO [Concomitant]

REACTIONS (3)
  - Weight increased [Recovering/Resolving]
  - Fluid retention [Recovering/Resolving]
  - Constipation [Recovering/Resolving]
